FAERS Safety Report 7341887-2 (Version None)
Quarter: 2011Q1

REPORT INFORMATION
  Report Type: 
  Country: None (occurrence: None)
  Receive Date: 20110309
  Receipt Date: 20110228
  Transmission Date: 20110831
  Serious: Yes (Hospitalization)
  Sender: FDA-Public Use
  Company Number: CA-ELI_LILLY_AND_COMPANY-CA201102007556

PATIENT
  Age: 56 Year
  Sex: Female

DRUGS (7)
  1. CYMBALTA [Suspect]
     Dosage: 30 MG, UNK
  2. CYMBALTA [Suspect]
     Dosage: 30 MG, UNK
  3. CYMBALTA [Suspect]
     Dosage: 60 MG, UNK
     Dates: start: 20100901
  4. MULTI-VITAMIN [Concomitant]
  5. ALLERGY MEDICATION [Concomitant]
  6. CYMBALTA [Suspect]
     Indication: ANXIETY
     Dosage: 30 MG, UNK
     Dates: start: 20100701, end: 20100901
  7. CYMBALTA [Suspect]
     Dosage: 30 MG, QOD

REACTIONS (10)
  - DRUG WITHDRAWAL SYNDROME [None]
  - TINNITUS [None]
  - VISUAL IMPAIRMENT [None]
  - HEARING IMPAIRED [None]
  - HYPERTENSION [None]
  - GAIT DISTURBANCE [None]
  - PALPITATIONS [None]
  - VERTIGO [None]
  - PARAESTHESIA [None]
  - NAUSEA [None]
